FAERS Safety Report 6415919-X (Version None)
Quarter: 2009Q4

REPORT INFORMATION
  Report Type: 
  Country: None (occurrence: None)
  Receive Date: 20091027
  Receipt Date: 20091022
  Transmission Date: 20100525
  Serious: Yes (Hospitalization)
  Sender: FDA-Public Use
  Company Number: A0812993A

PATIENT
  Age: 47 Year
  Sex: Female

DRUGS (3)
  1. LAMICTAL [Suspect]
     Indication: BIPOLAR DISORDER
     Dosage: 200MG TWICE PER DAY
     Route: 048
  2. ADDERALL 10 [Concomitant]
     Dosage: 10MG THREE TIMES PER DAY
  3. KLONOPIN [Concomitant]

REACTIONS (9)
  - ACTIVITIES OF DAILY LIVING IMPAIRED [None]
  - ASTHENIA [None]
  - CONFUSIONAL STATE [None]
  - DRUG INEFFECTIVE [None]
  - DRUG LEVEL INCREASED [None]
  - ILL-DEFINED DISORDER [None]
  - MOVEMENT DISORDER [None]
  - SENSATION OF HEAVINESS [None]
  - TRANSIENT ISCHAEMIC ATTACK [None]
